FAERS Safety Report 4847512-4 (Version None)
Quarter: 2005Q4

REPORT INFORMATION
  Report Type: 
  Country: None (occurrence: None)
  Receive Date: 20051205
  Receipt Date: 20051125
  Transmission Date: 20060501
  Serious: Yes (Hospitalization)
  Sender: FDA-Public Use
  Company Number: 2005_000050

PATIENT
  Age: 56 Year
  Sex: Female

DRUGS (2)
  1. DEPOCYT (DEPOCYT) (50 MG) [Suspect]
     Indication: CHRONIC LYMPHOCYTIC LEUKAEMIA
     Dosage: 50 MG; QM; INTH
     Route: 037
     Dates: start: 20050101, end: 20050301
  2. DEXAMETHASONE [Concomitant]

REACTIONS (2)
  - SCIATICA [None]
  - SENSORY LOSS [None]
